FAERS Safety Report 6303057-6 (Version None)
Quarter: 2009Q3

REPORT INFORMATION
  Report Type: 
  Country: None (occurrence: None)
  Receive Date: 20090810
  Receipt Date: 20090521
  Transmission Date: 20100115
  Serious: No
  Sender: FDA-Public Use
  Company Number: US-BAYER-200924077NA

PATIENT
  Sex: Female

DRUGS (1)
  1. ULTRAVIST-300 PHARMACY BULK PACK [Suspect]
     Indication: ABDOMINAL PAIN LOWER
     Dosage: TOTAL DAILY DOSE: 100 ML  UNIT DOSE: 500 ML
     Route: 042
     Dates: start: 20090424, end: 20090424

REACTIONS (1)
  - URTICARIA [None]
